FAERS Safety Report 16590894 (Version 1)
Quarter: 2019Q3

REPORT INFORMATION
  Report Type: Spontaneous
  Country: US (occurrence: US)
  Receive Date: 20190717
  Receipt Date: 20190717
  Transmission Date: 20191004
  Serious: Yes (Death)
  Sender: FDA-Public Use
  Company Number: None

PATIENT
  Sex: Male

DRUGS (9)
  1. DEXAMETHASON [Concomitant]
     Active Substance: DEXAMETHASONE
  2. ATROPINE. [Concomitant]
     Active Substance: ATROPINE
  3. OXYCODONE [Concomitant]
     Active Substance: OXYCODONE
  4. MYCOPHENOLATE [Suspect]
     Active Substance: MYCOPHENOLIC ACID
     Indication: TRANSPLANT
     Route: 048
     Dates: start: 20190307
  5. CARVEDILOL. [Concomitant]
     Active Substance: CARVEDILOL
  6. OMEPRAZOLE. [Concomitant]
     Active Substance: OMEPRAZOLE
  7. ENOXAPARIN [Concomitant]
     Active Substance: ENOXAPARIN
  8. PREDNISONE. [Concomitant]
     Active Substance: PREDNISONE
  9. ZORTRESS [Concomitant]
     Active Substance: EVEROLIMUS

REACTIONS (1)
  - Death [None]
